FAERS Safety Report 15515572 (Version 8)
Quarter: 2019Q2

REPORT INFORMATION
  Report Type: Report from Study
  Country: DE (occurrence: DE)
  Receive Date: 20181017
  Receipt Date: 20190516
  Transmission Date: 20190711
  Serious: Yes (Other)
  Sender: FDA-Public Use
  Company Number: DE-ROCHE-2199160

PATIENT
  Age: 35 Year
  Sex: Female

DRUGS (5)
  1. OCREVUS [Suspect]
     Active Substance: OCRELIZUMAB
     Indication: RELAPSING-REMITTING MULTIPLE SCLEROSIS
     Route: 042
     Dates: start: 20180628, end: 20180712
  2. FAMPYRA [Concomitant]
     Active Substance: DALFAMPRIDINE
     Route: 065
  3. MEMANTINE. [Concomitant]
     Active Substance: MEMANTINE
     Route: 065
  4. BACLOFEN. [Concomitant]
     Active Substance: BACLOFEN
     Dosage: AS REQUIRED (5-10 MG)
     Route: 065
  5. EMSELEX [DARIFENACIN] [Concomitant]
     Route: 065

REACTIONS (6)
  - Hordeolum [Recovered/Resolved]
  - Muscular weakness [Recovered/Resolved]
  - Urinary tract infection bacterial [Recovered/Resolved]
  - Menstrual disorder [Recovered/Resolved]
  - Gait disturbance [Not Recovered/Not Resolved]
  - Alopecia [Recovered/Resolved]

NARRATIVE: CASE EVENT DATE: 20180628
